FAERS Safety Report 8171522-5 (Version None)
Quarter: 2012Q1

REPORT INFORMATION
  Report Type: 
  Country: None (occurrence: None)
  Receive Date: 20120228
  Receipt Date: 20120223
  Transmission Date: 20120608
  Serious: Yes (Other)
  Sender: FDA-Public Use
  Company Number: US-ABBOTT-12P-163-0908936-00

PATIENT
  Sex: Female
  Weight: 53.572 kg

DRUGS (2)
  1. MULTI-VITAMINS [Concomitant]
     Indication: PREGNANCY
     Route: 048
     Dates: start: 20070101, end: 20080101
  2. HUMIRA [Suspect]
     Indication: CROHN'S DISEASE
     Route: 058
     Dates: start: 20070801, end: 20110801

REACTIONS (2)
  - FOETAL DEATH [None]
  - FOETAL HEART RATE ABNORMAL [None]
